FAERS Safety Report 6151339-3 (Version None)
Quarter: 2009Q2

REPORT INFORMATION
  Report Type: 
  Country: None (occurrence: None)
  Receive Date: 20090410
  Receipt Date: 20090408
  Transmission Date: 20091009
  Serious: Yes (Life-Threatening)
  Sender: FDA-Public Use
  Company Number: CH-ASTRAZENECA-2009PK01043

PATIENT
  Age: 33 Year
  Sex: Female
  Weight: 67 kg

DRUGS (10)
  1. SEROQUEL [Suspect]
     Indication: PERSONALITY DISORDER
     Route: 048
     Dates: start: 20081201, end: 20090301
  2. SEROQUEL [Interacting]
     Route: 048
     Dates: start: 20090301
  3. METHADONE HCL [Interacting]
     Indication: ABNORMAL BEHAVIOUR
     Route: 048
     Dates: start: 20050101, end: 20090326
  4. METHADONE HCL [Interacting]
     Dosage: 13 TABLETS WITHIN ONE DAY
     Route: 048
     Dates: start: 20090327, end: 20090327
  5. METHADONE HCL [Interacting]
     Route: 048
     Dates: start: 20090301
  6. KALETRA [Interacting]
     Indication: HIV INFECTION
     Route: 048
     Dates: start: 20060101
  7. VIREAD [Concomitant]
     Indication: HIV INFECTION
     Route: 048
     Dates: start: 20070101
  8. RETROVIR [Concomitant]
     Indication: HIV INFECTION
     Route: 048
     Dates: start: 20050101
  9. RIVOTRIL [Concomitant]
     Route: 048
     Dates: start: 20060101
  10. EFFEXOR [Concomitant]
     Indication: PERSONALITY DISORDER
     Route: 048
     Dates: start: 20060101

REACTIONS (4)
  - DRUG INTERACTION [None]
  - DRUG TOXICITY [None]
  - ELECTROCARDIOGRAM QT PROLONGED [None]
  - SUICIDE ATTEMPT [None]
